FAERS Safety Report 25095009 (Version 2)
Quarter: 2025Q1

REPORT INFORMATION
  Report Type: Spontaneous
  Country: US (occurrence: US)
  Receive Date: 20250319
  Receipt Date: 20250321
  Transmission Date: 20250409
  Serious: Yes (Life-Threatening, Other)
  Sender: PFIZER
  Company Number: US-PFIZER INC-202500058883

PATIENT
  Age: 57 Year
  Sex: Male
  Weight: 122.47 kg

DRUGS (3)
  1. MORPHINE SULFATE [Suspect]
     Active Substance: MORPHINE SULFATE
     Indication: Plasma cell myeloma
     Dosage: 30 MG, 2X/DAY ( 1 TABLET EVERY 12 HOURS BY MOUTH)
     Route: 048
     Dates: start: 2018
  2. MORPHINE SULFATE [Suspect]
     Active Substance: MORPHINE SULFATE
     Indication: Neoplasm malignant
  3. MORPHINE SULFATE [Suspect]
     Active Substance: MORPHINE SULFATE
     Indication: Neuropathy peripheral

REACTIONS (4)
  - Drug dependence [Unknown]
  - Neuropathy peripheral [Unknown]
  - Withdrawal syndrome [Unknown]
  - Anxiety [Unknown]

NARRATIVE: CASE EVENT DATE: 20220101
